FAERS Safety Report 24897082 (Version 1)
Quarter: 2025Q1

REPORT INFORMATION
  Report Type: Spontaneous
  Country: GB (occurrence: GB)
  Receive Date: 20250128
  Receipt Date: 20250128
  Transmission Date: 20250408
  Serious: No
  Sender: ALKEM
  Company Number: None

PATIENT
  Age: 88 Year
  Sex: Female
  Weight: 58 kg

DRUGS (18)
  1. CEPHALEXIN [Suspect]
     Active Substance: CEPHALEXIN
     Indication: Product used for unknown indication
     Dosage: 250 MILLIGRAM, TID, (TAKE ONE 3 TIMES/DAY, CAPSULE)
     Route: 065
     Dates: start: 20240415
  2. CALCIUM CARBONATE\SODIUM ALGINATE\SODIUM BICARBONATE [Concomitant]
     Active Substance: CALCIUM CARBONATE\SODIUM ALGINATE\SODIUM BICARBONATE
     Indication: Product used for unknown indication
     Dosage: UNK, QID, (2X5ML SPOON 4 TIMES/DAY)
     Route: 065
     Dates: start: 20231213
  3. Adcal [Concomitant]
     Indication: Product used for unknown indication
     Dosage: UNK, BID, (TAKE TWO TWICE DAILY)
     Route: 065
     Dates: start: 20230613
  4. AMOXICILLIN [Concomitant]
     Active Substance: AMOXICILLIN
     Indication: Product used for unknown indication
     Dosage: UNK, TID, (ONE TABLET THREE TIMES A DAY FOR 5 DAYS)
     Route: 065
     Dates: start: 20240223, end: 20240228
  5. ATORVASTATIN [Concomitant]
     Active Substance: ATORVASTATIN
     Indication: Product used for unknown indication
     Route: 065
     Dates: start: 20230613
  6. CIPROFLOXACIN [Concomitant]
     Active Substance: CIPROFLOXACIN
     Indication: Product used for unknown indication
     Dosage: UNK, BID, (ONE TABLET TWICE A DAY FOR 7 DAYS)
     Route: 065
     Dates: start: 20240417
  7. CLOPIDOGREL [Concomitant]
     Active Substance: CLOPIDOGREL BISULFATE
     Indication: Product used for unknown indication
     Dosage: UNK, QD, (TAKE ONE ONCE DAILY)
     Route: 065
     Dates: start: 20230613
  8. COCODAMOL [Concomitant]
     Active Substance: ACETAMINOPHEN\CODEINE PHOSPHATE
     Indication: Product used for unknown indication
     Dosage: UNK, QID, (TAKE 2 CAPSULES 4 TIMES/DAY)
     Route: 065
     Dates: start: 20230728
  9. GLICLAZIDE [Concomitant]
     Active Substance: GLICLAZIDE
     Indication: Product used for unknown indication
     Dosage: UNK, QD, (TAKE ONE TABLET DAILY WITH BREAKFAST)
     Route: 065
     Dates: start: 20230207
  10. HYDROCORTISONE [Concomitant]
     Active Substance: HYDROCORTISONE
     Indication: Product used for unknown indication
     Route: 065
     Dates: start: 20240417
  11. LANSOPRAZOLE [Concomitant]
     Active Substance: LANSOPRAZOLE
     Indication: Product used for unknown indication
     Dosage: UNK, QD, (TAKE ONE ONCE DAILY)
     Route: 065
     Dates: start: 20230613
  12. LANTUS [Concomitant]
     Active Substance: INSULIN GLARGINE
     Indication: Product used for unknown indication
     Route: 065
     Dates: start: 20230530
  13. METFORMIN [Concomitant]
     Active Substance: METFORMIN HYDROCHLORIDE
     Indication: Product used for unknown indication
     Dosage: UNK, BID, (TWO TO BE TAKEN TWICE DAILY)
     Route: 065
     Dates: start: 20230613
  14. MIRABEGRON [Concomitant]
     Active Substance: MIRABEGRON
     Indication: Product used for unknown indication
     Dosage: UNK, QD, (TAKE ONE DAILY)
     Route: 065
     Dates: start: 20230613
  15. MORPHINE SULFATE [Concomitant]
     Active Substance: MORPHINE SULFATE
     Indication: Product used for unknown indication
     Route: 065
     Dates: start: 20230728
  16. NITROFURANTOIN [Concomitant]
     Active Substance: NITROFURANTOIN
     Indication: Product used for unknown indication
     Dosage: UNK, BID, (ONE TABLET TWICE A DAY FOR 7 DAYS)
     Route: 065
     Dates: start: 20240408, end: 20240415
  17. RAMIPRIL [Concomitant]
     Active Substance: RAMIPRIL
     Indication: Product used for unknown indication
     Dosage: UNK, QD, (TAKE ONE DAILY)
     Route: 065
     Dates: start: 20230613
  18. SITAGLIPTIN [Concomitant]
     Active Substance: SITAGLIPTIN
     Indication: Product used for unknown indication
     Dosage: UNK, QD, (TAKE ONE DAILY)
     Route: 065
     Dates: start: 20230613

REACTIONS (1)
  - Rash [Recovered/Resolved]
